FAERS Safety Report 18646210 (Version 1)
Quarter: 2020Q4

REPORT INFORMATION
  Report Type: Spontaneous
  Country: JP (occurrence: JP)
  Receive Date: 20201221
  Receipt Date: 20201221
  Transmission Date: 20210114
  Serious: Yes (Hospitalization)
  Sender: FDA-Public Use
  Company Number: JP-AMGEN-JPNSP2020208158

PATIENT
  Sex: Female
  Weight: 52 kg

DRUGS (1)
  1. PRALIA [Suspect]
     Active Substance: DENOSUMAB
     Indication: OSTEOPOROSIS
     Dosage: UNK
     Route: 065
     Dates: start: 20190213

REACTIONS (2)
  - Periprosthetic fracture [Unknown]
  - Fall [Unknown]

NARRATIVE: CASE EVENT DATE: 20190217
